FAERS Safety Report 6383712-2 (Version None)
Quarter: 2009Q4

REPORT INFORMATION
  Report Type: 
  Country: None (occurrence: None)
  Receive Date: 20091001
  Receipt Date: 20090925
  Transmission Date: 20100525
  Serious: Yes (Other)
  Sender: FDA-Public Use
  Company Number: US-JNJFOC-20090908560

PATIENT
  Sex: Female

DRUGS (6)
  1. FENTANYL TRANSDERMAL SYSTEM [Suspect]
     Indication: DRUG USE FOR UNKNOWN INDICATION
     Route: 062
  2. COZAAR [Concomitant]
     Route: 048
  3. FLEXERIL [Concomitant]
     Route: 048
  4. ATIVAN [Concomitant]
  5. CELEXA [Concomitant]
  6. CYCLOSPORINE [Concomitant]
     Indication: PSORIASIS

REACTIONS (3)
  - CERUMEN IMPACTION [None]
  - STAPHYLOCOCCAL INFECTION [None]
  - TRANSAMINASES INCREASED [None]
